FAERS Safety Report 9778849 (Version 1)
Quarter: 2013Q4

REPORT INFORMATION
  Report Type: Spontaneous
  Country: FR (occurrence: FR)
  Receive Date: 20131223
  Receipt Date: 20131223
  Transmission Date: 20140711
  Serious: Yes (Hospitalization)
  Sender: FDA-Public Use
  Company Number: FR-PFIZER INC-2013360266

PATIENT
  Age: 84 Year
  Sex: Male

DRUGS (9)
  1. TAHOR [Suspect]
     Indication: DYSLIPIDAEMIA
     Dosage: 40 MG, DAILY
     Route: 048
     Dates: start: 201111, end: 20130824
  2. TAHOR [Suspect]
     Dosage: 40 MG, DAILY
     Route: 048
     Dates: start: 20130906, end: 20131106
  3. IRBESARTAN [Suspect]
     Dosage: 150 MG, DAILY
  4. PANTOPRAZOLE [Suspect]
     Dosage: 20 MG, DAILY
     Route: 048
     Dates: end: 20131106
  5. FUROSEMIDE [Suspect]
     Dosage: 40 MG, 2X/DAY
     Route: 048
  6. ALLOPURINOL [Suspect]
     Indication: GOUT
     Dosage: 100 MG, DAILY
     Route: 048
     Dates: end: 20131106
  7. NEBIVOLOL [Concomitant]
     Dosage: 5 MG
  8. CLOPIDOGREL [Concomitant]
     Dosage: 75 MG
  9. ZOLPIDEM [Concomitant]
     Dosage: 10 MG

REACTIONS (1)
  - Linear IgA disease [Recovering/Resolving]
